FAERS Safety Report 10077391 (Version 2)
Quarter: 2014Q2

REPORT INFORMATION
  Report Type: Spontaneous
  Country: US (occurrence: US)
  Receive Date: 20140414
  Receipt Date: 20140414
  Transmission Date: 20141212
  Serious: No
  Sender: FDA-Public Use
  Company Number: US-BANPHARM-20131459

PATIENT
  Age: 82 Year
  Sex: Female
  Weight: 66.68 kg

DRUGS (3)
  1. ALEVE LIQUID GELS 220 MG [Suspect]
     Indication: PAIN
     Dosage: 1 DF, ONCE,
     Route: 048
     Dates: start: 20130625, end: 20130625
  2. ALEVE TABLETS [Suspect]
     Indication: PAIN
     Dosage: 1 DF, ONCE,
     Route: 048
     Dates: start: 2013, end: 2013
  3. VITAMINS [Concomitant]

REACTIONS (1)
  - Drug ineffective [Unknown]
